FAERS Safety Report 8202205-0 (Version None)
Quarter: 2012Q1

REPORT INFORMATION
  Report Type: 
  Country: None (occurrence: None)
  Receive Date: 20120312
  Receipt Date: 20120301
  Transmission Date: 20120608
  Serious: Yes (Life-Threatening, Hospitalization, Other)
  Sender: FDA-Public Use
  Company Number: GB-BRISTOL-MYERS SQUIBB COMPANY-16427528

PATIENT
  Age: 30 Year
  Sex: Female

DRUGS (4)
  1. DEPAKOTE [Concomitant]
     Route: 048
  2. CLOZARIL [Suspect]
     Dosage: TABS
     Route: 048
     Dates: start: 20111005
  3. ARIPIPRAZOLE [Suspect]
  4. YASMIN [Suspect]

REACTIONS (4)
  - MYOCARDIAL INFARCTION [None]
  - CARDIAC ARREST [None]
  - VENTRICULAR FIBRILLATION [None]
  - BIPOLAR DISORDER [None]
